FAERS Safety Report 25622348 (Version 1)
Quarter: 2025Q3

REPORT INFORMATION
  Report Type: Spontaneous
  Country: EU (occurrence: EU)
  Receive Date: 20250730
  Receipt Date: 20250730
  Transmission Date: 20251020
  Serious: Yes (Death, Hospitalization)
  Sender: TEVA
  Company Number: None

PATIENT
  Age: 47 Year
  Sex: Female
  Weight: 64 kg

DRUGS (36)
  1. DIAZEPAM [Suspect]
     Active Substance: DIAZEPAM
     Indication: Oesophagogastroscopy
     Route: 048
     Dates: start: 19980415, end: 19980415
  2. CLONT [Concomitant]
     Indication: Pyrexia
     Route: 048
     Dates: start: 19980323, end: 19980330
  3. LASIX [Suspect]
     Active Substance: FUROSEMIDE
     Indication: Oedema
     Route: 048
     Dates: start: 19980406, end: 19980426
  4. SODIUM POLYSTYRENE SULFONATE [Suspect]
     Active Substance: SODIUM POLYSTYRENE SULFONATE
     Indication: Hyperkalaemia
     Route: 048
     Dates: start: 19980406, end: 19980406
  5. DIBUCAINE\POLICRESULEN [Concomitant]
     Active Substance: DIBUCAINE\POLICRESULEN
     Indication: Haemorrhoids
     Route: 054
     Dates: start: 19980323, end: 19980426
  6. PARACTOL [Concomitant]
     Indication: Gastrointestinal disorder
     Route: 048
     Dates: start: 19980402, end: 19980402
  7. FUROSEMIDE\SPIRONOLACTONE [Suspect]
     Active Substance: FUROSEMIDE\SPIRONOLACTONE
     Indication: Oedema
     Route: 048
     Dates: start: 19980323, end: 19980405
  8. OXAZEPAM [Suspect]
     Active Substance: OXAZEPAM
     Indication: Sleep disorder
     Route: 048
     Dates: start: 19980330, end: 19980416
  9. CIPROFLOXACIN [Suspect]
     Active Substance: CIPROFLOXACIN
     Indication: Pyrexia
     Route: 048
     Dates: start: 19980404, end: 19980410
  10. CIPROFLOXACIN [Suspect]
     Active Substance: CIPROFLOXACIN
     Indication: Pyrexia
     Route: 048
     Dates: start: 19980417, end: 19980426
  11. DIMENHYDRINATE [Suspect]
     Active Substance: DIMENHYDRINATE
     Indication: Nausea
     Route: 054
     Dates: start: 19980414, end: 19980414
  12. LASIX [Concomitant]
     Active Substance: FUROSEMIDE
     Indication: Oedema
     Route: 042
     Dates: start: 19980323, end: 19980327
  13. AQUAPHOR [Concomitant]
     Active Substance: PETROLATUM
     Indication: Oedema
     Route: 048
     Dates: start: 19980323, end: 19980407
  14. LINOLA FETT [Concomitant]
     Indication: Dry skin
     Route: 061
     Dates: start: 19980323, end: 19980426
  15. ZYRTEC [Concomitant]
     Active Substance: CETIRIZINE HYDROCHLORIDE
     Indication: Rash macular
     Route: 048
     Dates: start: 19980419, end: 19980426
  16. CARBAMAZEPINE [Concomitant]
     Active Substance: CARBAMAZEPINE
     Indication: Prophylaxis
     Route: 048
     Dates: start: 19980312, end: 19980323
  17. NOVALGIN (METAMIZOLE SODIUM) [Suspect]
     Active Substance: METAMIZOLE SODIUM
     Indication: Pain
     Route: 048
     Dates: start: 19980403, end: 19980403
  18. OMEPRAZOLE [Concomitant]
     Active Substance: OMEPRAZOLE
     Indication: Gastric ulcer
     Route: 048
     Dates: start: 19980323, end: 19980426
  19. IMODIUM [Suspect]
     Active Substance: LOPERAMIDE HYDROCHLORIDE
     Indication: Gastroenteritis viral
     Route: 048
     Dates: start: 19980405, end: 19980406
  20. ACETYLCYSTEINE [Concomitant]
     Active Substance: ACETYLCYSTEINE
     Indication: Unevaluable event
     Route: 048
     Dates: start: 19980323, end: 19980426
  21. ACETAMINOPHEN [Concomitant]
     Active Substance: ACETAMINOPHEN
     Indication: Pyrexia
     Route: 054
     Dates: start: 19980416, end: 19980419
  22. CLOTRIMAZOLE [Suspect]
     Active Substance: CLOTRIMAZOLE
     Indication: Vulvovaginal candidiasis
     Route: 061
     Dates: start: 19980415, end: 19980426
  23. NOVALGIN (METAMIZOLE SODIUM) [Suspect]
     Active Substance: METAMIZOLE SODIUM
     Indication: Pain
     Route: 048
     Dates: start: 19980403, end: 19980403
  24. FOLIC ACID [Concomitant]
     Active Substance: FOLIC ACID
     Indication: Folate deficiency
     Route: 048
     Dates: start: 19980323, end: 19980426
  25. BETABION [Concomitant]
     Indication: Vitamin supplementation
     Route: 042
     Dates: start: 19980323, end: 19980426
  26. CYTOBION [Concomitant]
     Indication: Vitamin supplementation
     Route: 058
     Dates: start: 19980323, end: 19980417
  27. KALINOR [Concomitant]
     Indication: Hypokalaemia
     Route: 048
     Dates: start: 19980323, end: 19980330
  28. CISAPRIDE [Suspect]
     Active Substance: CISAPRIDE
     Indication: Gastrointestinal disorder
     Route: 048
     Dates: start: 19980415, end: 19980416
  29. ATOSIL [Concomitant]
     Indication: Agitation
     Route: 048
     Dates: start: 19980417, end: 19980418
  30. TRAMADOL [Suspect]
     Active Substance: TRAMADOL
     Indication: Pain
     Dosage: TRAMAL TROPFEN
     Route: 048
     Dates: start: 19980409, end: 19980417
  31. DIFLUCAN [Concomitant]
     Active Substance: FLUCONAZOLE
     Indication: Candida infection
     Route: 048
     Dates: start: 19980417, end: 19980426
  32. AMPHOTERICIN B [Suspect]
     Active Substance: AMPHOTERICIN B
     Indication: Oesophageal candidiasis
     Route: 048
     Dates: start: 19980406, end: 19980426
  33. FUROSEMIDE\SPIRONOLACTONE [Suspect]
     Active Substance: FUROSEMIDE\SPIRONOLACTONE
     Indication: Oedema
     Dosage: OSYROL 100 - LASIX
     Route: 048
     Dates: start: 19980323, end: 19980405
  34. POTASSIUM CHLORIDE [Concomitant]
     Active Substance: POTASSIUM CHLORIDE
     Indication: Hypokalaemia
     Route: 048
     Dates: start: 19980324, end: 19980411
  35. KONAKION [Suspect]
     Active Substance: PHYTONADIONE
     Indication: Vitamin K deficiency
     Route: 048
     Dates: start: 19980409, end: 19980426
  36. KONAKION [Suspect]
     Active Substance: PHYTONADIONE
     Indication: Vitamin K deficiency
     Route: 048
     Dates: start: 19980409, end: 19980426

REACTIONS (6)
  - Toxic epidermal necrolysis [Fatal]
  - Pyrexia [Unknown]
  - Conjunctivitis [Unknown]
  - Mouth ulceration [Unknown]
  - Vulvovaginal candidiasis [Unknown]
  - Mucosa vesicle [Unknown]

NARRATIVE: CASE EVENT DATE: 19980416
